FAERS Safety Report 10965025 (Version 3)
Quarter: 2024Q1

REPORT INFORMATION
  Report Type: Spontaneous
  Country: IN (occurrence: IN)
  Receive Date: 20150330
  Receipt Date: 20240105
  Transmission Date: 20240410
  Serious: Yes (Death, Hospitalization, Other)
  Sender: FDA-Public Use
  Company Number: IN-AUROBINDO-AUR-APL-2015-02603

PATIENT
  Age: 27 Year
  Sex: Male

DRUGS (12)
  1. EFAVIRENZ [Suspect]
     Active Substance: EFAVIRENZ
     Indication: HIV infection
     Dosage: UNK
     Route: 065
     Dates: start: 20101222
  2. LAMIVUDINE [Suspect]
     Active Substance: LAMIVUDINE
     Indication: HIV infection
     Dosage: UNK
     Route: 065
     Dates: start: 20101222
  3. STAVUDINE [Suspect]
     Active Substance: STAVUDINE
     Indication: HIV infection
     Dosage: UNK
     Route: 065
     Dates: start: 20101222
  4. COTRIMOXAZOLE [Concomitant]
     Active Substance: SULFAMETHOXAZOLE\TRIMETHOPRIM
     Indication: Pulmonary tuberculosis
     Dosage: UNK
     Route: 065
     Dates: start: 20101206
  5. CLOXACILLIN [Concomitant]
     Active Substance: CLOXACILLIN
     Indication: Sepsis
     Dosage: 1 G, TWO TIMES A DAY
     Route: 042
  6. CLOXACILLIN [Concomitant]
     Active Substance: CLOXACILLIN
     Indication: Klebsiella infection
  7. CEFTRIAXONE [Concomitant]
     Active Substance: CEFTRIAXONE\CEFTRIAXONE SODIUM
     Indication: Sepsis
     Dosage: 2 G, DAILY
     Route: 042
  8. CEFTRIAXONE [Concomitant]
     Active Substance: CEFTRIAXONE\CEFTRIAXONE SODIUM
     Indication: Klebsiella infection
  9. ISONIAZID [Concomitant]
     Active Substance: ISONIAZID
     Indication: Pulmonary tuberculosis
     Dosage: UNK
     Route: 065
     Dates: start: 20101206
  10. RIFAMPIN [Concomitant]
     Active Substance: RIFAMPIN
     Indication: Pulmonary tuberculosis
     Dosage: UNK
     Route: 065
     Dates: start: 20101206
  11. ETHAMBUTOL [Concomitant]
     Active Substance: ETHAMBUTOL HYDROCHLORIDE
     Indication: Pulmonary tuberculosis
     Dosage: UNK
     Route: 065
     Dates: start: 20101206
  12. PYRAZINAMIDE [Concomitant]
     Active Substance: PYRAZINAMIDE
     Indication: Pulmonary tuberculosis
     Dosage: UNK
     Route: 065
     Dates: start: 20101206

REACTIONS (22)
  - Immune reconstitution inflammatory syndrome associated tuberculosis [Fatal]
  - Osteomyelitis acute [Not Recovered/Not Resolved]
  - Sepsis [Recovered/Resolved]
  - Dactylitis [Recovering/Resolving]
  - Dyspnoea [Unknown]
  - Arthralgia [Unknown]
  - Toxicity to various agents [Recovered/Resolved]
  - Ulcer [Not Recovered/Not Resolved]
  - Tenderness [Unknown]
  - Pyrexia [Recovered/Resolved]
  - Disseminated tuberculosis [Recovered/Resolved]
  - Cellulitis [Recovered/Resolved]
  - Acid fast bacilli infection [Recovered/Resolved]
  - Decreased appetite [Unknown]
  - Tachycardia [Unknown]
  - Ulcer haemorrhage [Not Recovered/Not Resolved]
  - Deformity [Unknown]
  - Joint warmth [Unknown]
  - Swelling [Unknown]
  - Pain [Unknown]
  - Hypokinesia [Unknown]
  - Pneumonia klebsiella [Recovered/Resolved]

NARRATIVE: CASE EVENT DATE: 20110120
